FAERS Safety Report 17201913 (Version 1)
Quarter: 2020Q1

REPORT INFORMATION
  Report Type: Spontaneous
  Country: US (occurrence: US)
  Receive Date: 20191225
  Receipt Date: 20191225
  Transmission Date: 20200409
  Serious: Yes (Hospitalization, Disabling)
  Sender: FDA-Public Use
  Company Number: None

PATIENT
  Age: 49 Year
  Sex: Female
  Weight: 65.7 kg

DRUGS (5)
  1. IMODIUM [Suspect]
     Active Substance: LOPERAMIDE HYDROCHLORIDE
  2. LAMICTAL [Concomitant]
     Active Substance: LAMOTRIGINE
  3. VIT D [Concomitant]
     Active Substance: VITAMIN D NOS
  4. ASPIRIN. [Concomitant]
     Active Substance: ASPIRIN
  5. COLESVAM MEDICAL MARIJUANA (CBD) [Concomitant]

REACTIONS (8)
  - Blood glucose decreased [None]
  - Cerebrovascular accident [None]
  - Palpitations [None]
  - Vertigo [None]
  - Diarrhoea [None]
  - Loss of consciousness [None]
  - Seizure [None]
  - Aura [None]

NARRATIVE: CASE EVENT DATE: 20140526
